FAERS Safety Report 10758623 (Version 1)
Quarter: 2015Q1

REPORT INFORMATION
  Report Type: Spontaneous
  Country: US (occurrence: None)
  Receive Date: 20150123
  Receipt Date: 20150123
  Transmission Date: 20150721
  Serious: No
  Sender: FDA-Public Use
  Company Number: 2014TUS008895

PATIENT
  Age: 17 Year
  Sex: Male
  Weight: 61.8 kg

DRUGS (4)
  1. TRAMADOL [Concomitant]
     Active Substance: TRAMADOL
  2. ZINC [Concomitant]
     Active Substance: ZINC\ZINC CHLORIDE
  3. ENTYVIO [Suspect]
     Active Substance: VEDOLIZUMAB
     Indication: CROHN^S DISEASE
     Dosage: 300 MG, FIRST DGOSE, INTRAVENOUS
     Route: 042
  4. ZOFRAN/00955301/ (ONDANSETRON) [Concomitant]

REACTIONS (4)
  - Myalgia [None]
  - Arthralgia [None]
  - Activities of daily living impaired [None]
  - Off label use [None]

NARRATIVE: CASE EVENT DATE: 20140912
